FAERS Safety Report 4588880-0 (Version None)
Quarter: 2005Q1

REPORT INFORMATION
  Report Type: 
  Country: None (occurrence: None)
  Receive Date: 20050216
  Receipt Date: 20050126
  Transmission Date: 20050727
  Serious: Yes (Other)
  Sender: FDA-Public Use
  Company Number: ATO-05-0021

PATIENT
  Age: 82 Year
  Sex: Male

DRUGS (1)
  1. TRISENOX [Suspect]
     Indication: MULTIPLE MYELOMA
     Dosage: 0.25 MG/KG, QD M-F FOR 2 WKS, THEN OFF X 2WKS), IVI
     Dates: start: 20050110, end: 20050121

REACTIONS (2)
  - CALCULUS BLADDER [None]
  - HAEMORRHAGE [None]
